FAERS Safety Report 16683096 (Version 1)
Quarter: 2019Q3

REPORT INFORMATION
  Report Type: Spontaneous
  Country: US (occurrence: US)
  Receive Date: 20190808
  Receipt Date: 20190808
  Transmission Date: 20191004
  Serious: No
  Sender: FDA-Public Use
  Company Number: US-IPSEN BIOPHARMACEUTICALS, INC.-2019-13751

PATIENT
  Age: 77 Year
  Sex: Female

DRUGS (5)
  1. OXYCONTIN [Concomitant]
     Active Substance: OXYCODONE HYDROCHLORIDE
  2. XELJANZ [Concomitant]
     Active Substance: TOFACITINIB CITRATE
  3. ATENOLOL. [Concomitant]
     Active Substance: ATENOLOL
  4. DYSPORT [Suspect]
     Active Substance: ABOBOTULINUMTOXINA
     Indication: SKIN WRINKLING
     Dosage: 30 IU
     Route: 065
     Dates: start: 20190717, end: 20190717
  5. SCULPTA [Suspect]
     Active Substance: POLYLACTIDE, L-
     Indication: SKIN WRINKLING
     Dosage: TOTAL 2 VIAL INJECTED IN CHEEK

REACTIONS (4)
  - Muscular weakness [Recovered/Resolved]
  - Product use issue [Unknown]
  - Dizziness [Recovered/Resolved]
  - Gait disturbance [Recovered/Resolved]

NARRATIVE: CASE EVENT DATE: 20190717
